FAERS Safety Report 6241377-4 (Version None)
Quarter: 2009Q2

REPORT INFORMATION
  Report Type: 
  Country: None (occurrence: None)
  Receive Date: 20090623
  Receipt Date: 20090608
  Transmission Date: 20091009
  Serious: Yes (Hospitalization)
  Sender: FDA-Public Use
  Company Number: NL-GENENTECH-284713

PATIENT
  Sex: Male

DRUGS (2)
  1. BEVACIZUMAB [Suspect]
     Indication: COLORECTAL CANCER
     Dosage: 1150 MG, UNK
     Route: 048
     Dates: start: 20090206, end: 20090423
  2. CAPECITABINE [Suspect]
     Indication: COLORECTAL CANCER
     Dosage: 800 MG, UNK
     Route: 042
     Dates: start: 20090206

REACTIONS (1)
  - Q FEVER [None]
